FAERS Safety Report 5565560-6 (Version None)
Quarter: 2007Q4

REPORT INFORMATION
  Report Type: 
  Country: None (occurrence: None)
  Receive Date: 20071218
  Receipt Date: 20051107
  Transmission Date: 20080405
  Serious: Yes (Death, Hospitalization)
  Sender: FDA-Public Use
  Company Number: US-ROCHE-424964

PATIENT
  Age: 62 Year
  Sex: Male

DRUGS (11)
  1. ENFUVIRTIDE [Suspect]
     Indication: HIV INFECTION
     Route: 058
  2. LOPINAVIR AND RITONAVIR [Suspect]
     Indication: HIV INFECTION
     Dosage: RITONAVIR/LOPINAVIR (400 MG/100 MG)
     Route: 065
  3. DIDANOSINE [Suspect]
     Indication: HIV INFECTION
     Route: 065
  4. DELAVIRDINE [Suspect]
     Indication: HIV INFECTION
     Route: 065
  5. STAVUDINE [Suspect]
     Indication: HIV INFECTION
     Route: 065
  6. LAMIVUDINE [Suspect]
     Indication: HIV INFECTION
     Route: 065
  7. FLUCONAZOLE [Concomitant]
  8. VERAPAMIL [Concomitant]
  9. FUROSEMIDE [Concomitant]
  10. DRONABINOL [Concomitant]
  11. MULTI-VITAMIN [Concomitant]

REACTIONS (3)
  - ATRIAL FIBRILLATION [None]
  - DEATH [None]
  - ELECTROCARDIOGRAM QT PROLONGED [None]
